FAERS Safety Report 4840298-9 (Version None)
Quarter: 2005Q4

REPORT INFORMATION
  Report Type: 
  Country: None (occurrence: None)
  Receive Date: 20051020
  Receipt Date: 20050902
  Transmission Date: 20060501
  Serious: No
  Sender: FDA-Public Use
  Company Number: 2005BH001543

PATIENT
  Age: 31 Year
  Sex: Female
  Weight: 55.7924 kg

DRUGS (14)
  1. EXTRANEAL [Suspect]
     Indication: DRUG USE FOR UNKNOWN INDICATION
     Dosage: 2 L; AT BEDTIME; IP
     Route: 033
     Dates: start: 20050823, end: 20050902
  2. DIANEAL [Concomitant]
  3. RENAGEL [Concomitant]
  4. DILANTIN D.A. [Concomitant]
  5. LOVASTATIN [Concomitant]
  6. CALCITRIOL [Concomitant]
  7. MEDROL [Concomitant]
  8. WARFARIN SODIUM [Concomitant]
  9. TYLENOL (CAPLET) [Concomitant]
  10. FERROUS SULFATE TAB [Concomitant]
  11. PROCRIT [Concomitant]
  12. KEFLEX [Concomitant]
  13. CIPRO [Concomitant]
  14. HECTOROL [Concomitant]

REACTIONS (5)
  - BURNING SENSATION [None]
  - DERMATITIS EXFOLIATIVE [None]
  - RASH ERYTHEMATOUS [None]
  - RASH PAPULAR [None]
  - RASH PRURITIC [None]
